FAERS Safety Report 5853869-8 (Version None)
Quarter: 2008Q3

REPORT INFORMATION
  Report Type: 
  Country: None (occurrence: None)
  Receive Date: 20080822
  Receipt Date: 20080819
  Transmission Date: 20090109
  Serious: Yes (Death)
  Sender: FDA-Public Use
  Company Number: A0694271A

PATIENT
  Age: 61 Year
  Sex: Male
  Weight: 113.2 kg

DRUGS (4)
  1. AVANDIA [Suspect]
     Dosage: 8MG THREE TIMES PER DAY
     Route: 048
     Dates: start: 20040721, end: 20071105
  2. INSULIN [Concomitant]
  3. TRAMADOL HCL [Concomitant]
     Indication: PAIN
  4. GATIFLOXACIN [Concomitant]

REACTIONS (4)
  - CARDIAC FAILURE CONGESTIVE [None]
  - CEREBROVASCULAR ACCIDENT [None]
  - INJURY [None]
  - MYOCARDIAL INFARCTION [None]
